FAERS Safety Report 5402708-8 (Version None)
Quarter: 2007Q3

REPORT INFORMATION
  Report Type: 
  Country: None (occurrence: None)
  Receive Date: 20070801
  Receipt Date: 20070726
  Transmission Date: 20080115
  Serious: Yes (Other)
  Sender: FDA-Public Use
  Company Number: B0481499A

PATIENT
  Age: 60 Year
  Sex: Male

DRUGS (3)
  1. ALIFLUS [Suspect]
     Indication: ASTHMA
     Route: 055
     Dates: start: 20070614, end: 20070619
  2. FLUIBRON [Suspect]
     Indication: SINUSITIS
     Dosage: 25MG TWICE PER DAY
     Route: 055
     Dates: start: 20070615, end: 20070619
  3. FLUNISOLIDE [Suspect]
     Indication: SINUSITIS
     Dosage: 30MG TWICE PER DAY
     Route: 055
     Dates: start: 20070615, end: 20070619

REACTIONS (1)
  - THROMBOCYTOPENIA [None]
